FAERS Safety Report 5344222-4 (Version None)
Quarter: 2007Q2

REPORT INFORMATION
  Report Type: 
  Country: None (occurrence: None)
  Receive Date: 20070531
  Receipt Date: 20070531
  Transmission Date: 20071010
  Serious: Yes (Hospitalization)
  Sender: FDA-Public Use
  Company Number: None

PATIENT
  Age: 35 Year
  Sex: Male

DRUGS (1)
  1. HEPARIN [Suspect]
     Indication: THROMBOSIS PROPHYLAXIS
     Dosage: 5000 UNITS BID IV
     Route: 042
     Dates: start: 20060704, end: 20060713

REACTIONS (2)
  - ENDOCRINE DISORDER [None]
  - HEPARIN-INDUCED THROMBOCYTOPENIA [None]
